FAERS Safety Report 21397266 (Version 6)
Quarter: 2023Q1

REPORT INFORMATION
  Report Type: Spontaneous
  Country: JP (occurrence: JP)
  Receive Date: 20220930
  Receipt Date: 20230317
  Transmission Date: 20230418
  Serious: Yes (Death, Life-Threatening, Hospitalization, Other)
  Sender: FDA-Public Use
  Company Number: JP-MSD-M2022-31122

PATIENT
  Age: 63 Year
  Sex: Female
  Weight: 45 kg

DRUGS (7)
  1. KEYTRUDA [Suspect]
     Active Substance: PEMBROLIZUMAB
     Indication: Uterine cancer
     Dosage: 200 MILLIGRAM, Q3W
     Route: 041
     Dates: start: 20220714, end: 20220912
  2. KEYTRUDA [Suspect]
     Active Substance: PEMBROLIZUMAB
     Dosage: 200 MILLIGRAM, Q3W
     Route: 041
     Dates: start: 20221107, end: 20221107
  3. LENVATINIB MESYLATE [Suspect]
     Active Substance: LENVATINIB MESYLATE
     Indication: Uterine cancer
     Dosage: 20 MILLIGRAM, QD
     Route: 048
     Dates: start: 20220714, end: 20220804
  4. LENVATINIB MESYLATE [Suspect]
     Active Substance: LENVATINIB MESYLATE
     Dosage: 20 MILLIGRAM, QD
     Route: 048
     Dates: start: 20220809, end: 20220829
  5. LENVATINIB MESYLATE [Suspect]
     Active Substance: LENVATINIB MESYLATE
     Dosage: 14 MILLIGRAM, QD
     Route: 048
     Dates: start: 20220905, end: 20220911
  6. LENVATINIB MESYLATE [Suspect]
     Active Substance: LENVATINIB MESYLATE
     Dosage: 14 MILLIGRAM, 5 X PER WEEK
     Route: 048
     Dates: start: 20220912, end: 20220919
  7. LENVATINIB MESYLATE [Suspect]
     Active Substance: LENVATINIB MESYLATE
     Dosage: 10 MILLIGRAM, QD
     Route: 048
     Dates: start: 20221122, end: 20221123

REACTIONS (18)
  - Death [Fatal]
  - Palmar-plantar erythrodysaesthesia syndrome [Recovered/Resolved]
  - Adrenal insufficiency [Recovered/Resolved]
  - Rash [Recovered/Resolved]
  - Skin erosion [Recovered/Resolved]
  - Sepsis [Unknown]
  - Immune-mediated hypothyroidism [Recovered/Resolved]
  - Pyrexia [Unknown]
  - Pneumonia [Unknown]
  - Malaise [Unknown]
  - Pneumonia [Unknown]
  - KL-6 increased [Unknown]
  - Platelet count decreased [Recovering/Resolving]
  - Proteinuria [Unknown]
  - Erythema [Unknown]
  - Decreased appetite [Recovering/Resolving]
  - Pyrexia [Recovered/Resolved]
  - Urinary tract infection [Unknown]

NARRATIVE: CASE EVENT DATE: 20220727
